FAERS Safety Report 17337845 (Version 12)
Quarter: 2022Q4

REPORT INFORMATION
  Report Type: Spontaneous
  Country: GB (occurrence: GB)
  Receive Date: 20200129
  Receipt Date: 20221122
  Transmission Date: 20230113
  Serious: Yes (Hospitalization, Other)
  Sender: FDA-Public Use
  Company Number: GB-EMA-DD-20200114-BISHT_P-110620

PATIENT
  Age: 7 Year
  Sex: Male

DRUGS (11)
  1. LANSOPRAZOLE [Suspect]
     Active Substance: LANSOPRAZOLE
     Indication: Gastrooesophageal reflux disease
     Dosage: 15 MG, QD (STRENGTH: 2.5 MG)
     Route: 065
  2. LANSOPRAZOLE [Suspect]
     Active Substance: LANSOPRAZOLE
     Dosage: 2.5 MG, QD (STRENGTH: 15 MG)
     Route: 065
  3. DUTASTERIDE [Suspect]
     Active Substance: DUTASTERIDE
     Indication: Product used for unknown indication
     Dosage: 500 G, QD (STRENGTH: 500 MCG)
     Route: 065
  4. TRAMADOL [Suspect]
     Active Substance: TRAMADOL
     Indication: Product used for unknown indication
     Dosage: 100 MG, QD (100 MILLIGRAM, DAILY)
     Route: 065
  5. TRAMADOL [Suspect]
     Active Substance: TRAMADOL
     Dosage: 50 MG, QD
     Route: 065
  6. BISOPROLOL FUMARATE [Suspect]
     Active Substance: BISOPROLOL FUMARATE
     Indication: Product used for unknown indication
     Dosage: 2.5 MG, QD (2.5 MILLIGRAM, STRENGTH: 2.5 MG)
     Route: 065
  7. DAPTOMYCIN [Suspect]
     Active Substance: DAPTOMYCIN
     Indication: Product used for unknown indication
     Dosage: UNK, OFF LABEL USE
     Route: 042
  8. ALFUZOSIN HYDROCHLORIDE [Suspect]
     Active Substance: ALFUZOSIN HYDROCHLORIDE
     Indication: Product used for unknown indication
     Dosage: 10 MG, QD
  9. VANCOMYCIN [Suspect]
     Active Substance: VANCOMYCIN
     Indication: Bacteraemia
     Dosage: UNK (POWDER FOR INJECTION)
  10. ALFUZOSIN HYDROCHLORIDE [Suspect]
     Active Substance: ALFUZOSIN HYDROCHLORIDE
     Indication: Product used for unknown indication
     Dosage: 10 MG, QD (10 MILLIGRAM, DAILY)
  11. LINEZOLID [Concomitant]
     Active Substance: LINEZOLID
     Indication: Product used for unknown indication
     Dosage: UNK

REACTIONS (16)
  - Malaise [Unknown]
  - Lower respiratory tract infection [Unknown]
  - Antimicrobial susceptibility test resistant [Unknown]
  - Therapeutic response delayed [Unknown]
  - Minimum inhibitory concentration [Unknown]
  - Therapy non-responder [Unknown]
  - Intentional product misuse [Unknown]
  - Drug ineffective for unapproved indication [Unknown]
  - Product administration error [Unknown]
  - Product storage error [Unknown]
  - Product dispensing error [Unknown]
  - Wrong patient received product [Unknown]
  - Off label use [Unknown]
  - Drug dispensed to wrong patient [Unknown]
  - Expired product administered [Unknown]
  - Wrong product administered [Unknown]
